FAERS Safety Report 4323548-7 (Version None)
Quarter: 2004Q1

REPORT INFORMATION
  Report Type: 
  Country: None (occurrence: None)
  Receive Date: 20040325
  Receipt Date: 20040311
  Transmission Date: 20041129
  Serious: Yes (Hospitalization, Other)
  Sender: FDA-Public Use
  Company Number: WAES 0403GBR00142

PATIENT
  Age: 56 Year
  Sex: Male
  Weight: 100 kg

DRUGS (5)
  1. AZATHIOPRINE [Concomitant]
     Indication: TRANSPLANT REJECTION
     Dates: start: 19960301
  2. CYCLOSPORINE [Concomitant]
     Indication: TRANSPLANT REJECTION
     Dates: start: 19960301
  3. ZETIA [Suspect]
     Indication: HYPERCHOLESTEROLAEMIA
     Route: 048
     Dates: start: 20040216, end: 20040303
  4. PRINIVIL [Concomitant]
     Indication: HYPERTENSION
     Dates: start: 20020301
  5. PRAVASTATIN SODIUM [Concomitant]
     Indication: HYPERCHOLESTEROLAEMIA
     Dates: start: 20020301

REACTIONS (2)
  - MUSCULAR WEAKNESS [None]
  - MYALGIA [None]
